FAERS Safety Report 25476950 (Version 2)
Quarter: 2025Q3

REPORT INFORMATION
  Report Type: Report from Study
  Country: CA (occurrence: CA)
  Receive Date: 20250625
  Receipt Date: 20250703
  Transmission Date: 20251021
  Serious: Yes (Other)
  Sender: ABBVIE
  Company Number: CA-ABBVIE-6342582

PATIENT
  Age: 40 Year
  Sex: Female

DRUGS (1)
  1. RINVOQ [Suspect]
     Active Substance: UPADACITINIB
     Indication: Crohn^s disease
     Route: 048
     Dates: start: 20240212, end: 20250620

REACTIONS (3)
  - Colectomy [Unknown]
  - Colitis ulcerative [Unknown]
  - Ileostomy [Unknown]

NARRATIVE: CASE EVENT DATE: 20250609
